FAERS Safety Report 20465939 (Version 1)
Quarter: 2022Q1

REPORT INFORMATION
  Report Type: Spontaneous
  Country: JP (occurrence: None)
  Receive Date: 20220212
  Receipt Date: 20220212
  Transmission Date: 20220423
  Serious: Yes (Other)
  Sender: FDA-Public Use
  Company Number: JP-ROCHE-3021279

PATIENT
  Sex: Female

DRUGS (1)
  1. XOFLUZA [Suspect]
     Active Substance: BALOXAVIR MARBOXIL
     Indication: Product used for unknown indication
     Route: 048

REACTIONS (3)
  - Haemorrhagic disorder [Unknown]
  - Epistaxis [Unknown]
  - Ear haemorrhage [Recovering/Resolving]
